FAERS Safety Report 9434214 (Version 1)
Quarter: 2013Q3

REPORT INFORMATION
  Report Type: Report from Study
  Country: CA (occurrence: CA)
  Receive Date: 20130801
  Receipt Date: 20130801
  Transmission Date: 20140515
  Serious: Yes (Other)
  Sender: FDA-Public Use
  Company Number: CA-ROCHE-1201152

PATIENT
  Age: 41 Year
  Sex: Female
  Weight: 89.5 kg

DRUGS (3)
  1. ACTEMRA [Suspect]
     Indication: RHEUMATOID ARTHRITIS
     Route: 042
     Dates: start: 20130215
  2. ARTHROTEC [Concomitant]
  3. PREDNISONE [Concomitant]

REACTIONS (8)
  - Gastric infection [Unknown]
  - Headache [Recovered/Resolved]
  - Dry skin [Not Recovered/Not Resolved]
  - Diarrhoea [Not Recovered/Not Resolved]
  - Intestinal perforation [Unknown]
  - Drug ineffective [Unknown]
  - Toothache [Not Recovered/Not Resolved]
  - Dental plaque [Not Recovered/Not Resolved]
